FAERS Safety Report 7809109-3 (Version None)
Quarter: 2011Q4

REPORT INFORMATION
  Report Type: 
  Country: None (occurrence: None)
  Receive Date: 20111006
  Receipt Date: 20110927
  Transmission Date: 20120403
  Serious: Yes (Hospitalization, Other)
  Sender: FDA-Public Use
  Company Number: DE-001984

PATIENT
  Sex: Female
  Weight: 41 kg

DRUGS (1)
  1. NAGLAZYME [Suspect]
     Indication: MUCOPOLYSACCHARIDOSIS VI
     Dosage: 1 MG/KG 1X/WEEK INTRAVENEOUS DRIP
     Route: 041
     Dates: start: 20060420

REACTIONS (3)
  - TOOTH DISORDER [None]
  - TOOTH EXTRACTION [None]
  - ODONTOGENIC CYST [None]
